FAERS Safety Report 7035182-9 (Version None)
Quarter: 2010Q4

REPORT INFORMATION
  Report Type: 
  Country: None (occurrence: None)
  Receive Date: 20101008
  Receipt Date: 20101001
  Transmission Date: 20110411
  Serious: Yes (Hospitalization)
  Sender: FDA-Public Use
  Company Number: FR-BAYER-201041496GPV

PATIENT
  Age: 73 Year
  Sex: Male

DRUGS (11)
  1. CIFLOX [Suspect]
     Indication: ANTIBIOTIC PROPHYLAXIS
     Dosage: TOTAL DAILY DOSE: 1500 MG  UNIT DOSE: 750 MG
     Route: 048
     Dates: start: 20100315, end: 20100427
  2. CIFLOX [Suspect]
     Dosage: TOTAL DAILY DOSE: 1500 MG  UNIT DOSE: 750 MG
     Route: 048
     Dates: start: 20100502, end: 20100504
  3. KARDEGIC [Suspect]
     Indication: THROMBOSIS PROPHYLAXIS
     Route: 048
     Dates: start: 20100312, end: 20100503
  4. PLAVIX [Concomitant]
     Indication: MYOCARDIAL INFARCTION
     Dates: start: 20030101, end: 20100312
  5. ALFUZOSIN HCL [Concomitant]
     Indication: BENIGN PROSTATIC HYPERPLASIA
     Route: 048
     Dates: start: 20040101
  6. LOVENOX [Concomitant]
     Indication: THROMBOSIS PROPHYLAXIS
     Route: 058
     Dates: start: 20100312
  7. MOLSIDOMINE [Concomitant]
     Indication: CARDIOVASCULAR EVENT PROPHYLAXIS
     Dosage: TOTAL DAILY DOSE: 6 MG
     Route: 048
     Dates: start: 20030101
  8. AMLODIPINE [Concomitant]
     Indication: CARDIOVASCULAR EVENT PROPHYLAXIS
     Dosage: TOTAL DAILY DOSE: 5 MG  UNIT DOSE: 5 MG
     Route: 048
     Dates: start: 20030101
  9. CARDENSIEL [Concomitant]
     Indication: CARDIOVASCULAR EVENT PROPHYLAXIS
     Dosage: TOTAL DAILY DOSE: 3.25 MG  UNIT DOSE: 7.5 MG
     Route: 048
     Dates: start: 20030101
  10. SIMVASTATIN [Concomitant]
     Indication: HYPERCHOLESTEROLAEMIA
     Dosage: TOTAL DAILY DOSE: 40 MG
     Route: 048
     Dates: start: 20030101
  11. TRAMADOL HCL [Concomitant]
     Indication: PAIN
     Dosage: TOTAL DAILY DOSE: 200 MG
     Route: 048
     Dates: start: 20100315

REACTIONS (1)
  - VASCULAR PURPURA [None]
